FAERS Safety Report 14702423 (Version 3)
Quarter: 2018Q3

REPORT INFORMATION
  Report Type: Spontaneous
  Country: FR (occurrence: FR)
  Receive Date: 20180401
  Receipt Date: 20180820
  Transmission Date: 20181010
  Serious: Yes (Hospitalization, Other)
  Sender: FDA-Public Use
  Company Number: PHHY2018FR055996

PATIENT
  Age: 60 Year
  Sex: Male

DRUGS (18)
  1. CORTANCYL [Concomitant]
     Active Substance: PREDNISONE
     Indication: IMMUNOSUPPRESSION
     Dosage: 1 OT, QD 30 (UNKNOWN UNIT), ONCE DAILY
     Route: 065
     Dates: start: 20170627
  2. CORTANCYL [Concomitant]
     Active Substance: PREDNISONE
     Dosage: 20 (UNKNOWN UNIT), UNKNOWN FREQ.
     Route: 065
  3. CELLCEPT [Concomitant]
     Active Substance: MYCOPHENOLATE MOFETIL\MYCOPHENOLATE MOFETIL HYDROCHLORIDE
     Dosage: 1000 (UNKNOWN UNITS), UNKNOWN FREQ
     Route: 065
  4. CORTANCYL [Concomitant]
     Active Substance: PREDNISONE
     Dosage: 15 (UNKNOWN UNIT), UNKNOWN FREQ.
     Route: 065
  5. TACROLIMUS. [Suspect]
     Active Substance: TACROLIMUS
     Dosage: 5 OT, QD (5 UNITS NOT REPORTED, ONCE DAILY)
     Route: 065
     Dates: start: 20170630, end: 20171229
  6. CORTANCYL [Concomitant]
     Active Substance: PREDNISONE
     Dosage: 12.5 (UNKNOWN UNIT), UNKNOWN FREQ.
     Route: 065
  7. NEORAL [Concomitant]
     Active Substance: CYCLOSPORINE
     Indication: IMMUNOSUPPRESSANT DRUG THERAPY
     Dosage: 150 UNKNOWN UNIT, UNKNOWN FREQ.
     Route: 065
  8. CELLCEPT [Concomitant]
     Active Substance: MYCOPHENOLATE MOFETIL\MYCOPHENOLATE MOFETIL HYDROCHLORIDE
     Dosage: 500 (UNKNOWN UNITS), ONCE DAILY.
     Route: 065
  9. CORTANCYL [Concomitant]
     Active Substance: PREDNISONE
     Dosage: 10 (UNKNOWN UNIT), UNKNOWN FREQ.
     Route: 065
  10. CORTANCYL [Concomitant]
     Active Substance: PREDNISONE
     Dosage: 30 (UNKNOWN UNIT), ONCE DAILY
     Route: 065
     Dates: start: 20170627
  11. NEORAL [Concomitant]
     Active Substance: CYCLOSPORINE
     Dosage: 100 UNKNOWN UNIT, UNKNOWN FREQ.
     Route: 065
  12. TACROLIMUS. [Suspect]
     Active Substance: TACROLIMUS
     Indication: RENAL TRANSPLANT
     Dosage: 1 UNK, QD (6 UNITS NOT REPORTED)
     Route: 065
     Dates: start: 20170627
  13. TACROLIMUS. [Suspect]
     Active Substance: TACROLIMUS
     Dosage: 1 OT, QD (5.50 UNITS NOT REPORTED, ONCE DAILY)
     Route: 065
     Dates: start: 20170901, end: 20171229
  14. CELLCEPT [Concomitant]
     Active Substance: MYCOPHENOLATE MOFETIL\MYCOPHENOLATE MOFETIL HYDROCHLORIDE
     Indication: IMMUNOSUPPRESSION
     Dosage: 1 OT, QD (200 (UNKNOWN UNIT), ONCE DAILY
     Route: 065
     Dates: start: 20170627
  15. CELLCEPT [Concomitant]
     Active Substance: MYCOPHENOLATE MOFETIL\MYCOPHENOLATE MOFETIL HYDROCHLORIDE
     Dosage: 1500 (UNKNOWN UNITS), UNKNOWN FREQ
     Route: 065
  16. CORTANCYL [Concomitant]
     Active Substance: PREDNISONE
     Dosage: 7.5 (UNKNOWN UNIT), UNKNOWN FREQ.
     Route: 065
  17. CELLCEPT [Concomitant]
     Active Substance: MYCOPHENOLATE MOFETIL\MYCOPHENOLATE MOFETIL HYDROCHLORIDE
     Dosage: 500 (UNKNOWN UNITS), UNKNOWN FREQ
     Route: 065
  18. CORTANCYL [Concomitant]
     Active Substance: PREDNISONE
     Dosage: 5 (UNKNOWN UNIT), UNKNOWN FREQ.
     Route: 065

REACTIONS (3)
  - Subcutaneous abscess [Not Recovered/Not Resolved]
  - BK virus infection [Not Recovered/Not Resolved]
  - Cytomegalovirus viraemia [Unknown]

NARRATIVE: CASE EVENT DATE: 20170707
